FAERS Safety Report 4556194-0 (Version None)
Quarter: 2005Q1

REPORT INFORMATION
  Report Type: 
  Country: None (occurrence: None)
  Receive Date: 20050103
  Receipt Date: 20040902
  Transmission Date: 20050727
  Serious: Yes (Hospitalization)
  Sender: FDA-Public Use
  Company Number: 2004UW18818

PATIENT
  Age: 44 Year
  Sex: Male

DRUGS (9)
  1. CRESTOR [Suspect]
     Dosage: 10 MG QD PO
     Route: 048
  2. NEURONTIN [Concomitant]
  3. METHADONE HCL [Concomitant]
  4. ALTACE [Concomitant]
  5. ACTOS [Concomitant]
  6. TRAZADIBE [Concomitant]
  7. EFFEXOR [Concomitant]
  8. HUMULIN R [Concomitant]
  9. HUMALOG [Concomitant]

REACTIONS (1)
  - RHABDOMYOLYSIS [None]
